FAERS Safety Report 25263129 (Version 2)
Quarter: 2025Q2

REPORT INFORMATION
  Report Type: Report from Study
  Country: BR (occurrence: BR)
  Receive Date: 20250502
  Receipt Date: 20250610
  Transmission Date: 20250717
  Serious: Yes (Hospitalization, Other)
  Sender: NOVARTIS
  Company Number: BR-002147023-NVSC2025BR070301

PATIENT
  Sex: Female
  Weight: 86 kg

DRUGS (4)
  1. SECUKINUMAB [Suspect]
     Active Substance: SECUKINUMAB
     Indication: Psoriasis
     Dosage: 2 DOSAGE FORM, Q4W (2 AMPOULES EVERY 4 WEEKS)
     Route: 065
     Dates: start: 20230720, end: 20241120
  2. ACITRETIN [Concomitant]
     Active Substance: ACITRETIN
     Indication: Product used for unknown indication
     Route: 065
  3. CALCIPOTRIENE [Concomitant]
     Active Substance: CALCIPOTRIENE
     Indication: Product used for unknown indication
     Route: 065
  4. ADALIMUMAB [Concomitant]
     Active Substance: ADALIMUMAB
     Indication: Product used for unknown indication
     Route: 065

REACTIONS (19)
  - Skin exfoliation [Unknown]
  - Erythema [Unknown]
  - Muscular weakness [Unknown]
  - Diabetes mellitus [Unknown]
  - Retching [Unknown]
  - Myalgia [Not Recovered/Not Resolved]
  - Vomiting [Recovering/Resolving]
  - Swelling face [Unknown]
  - Weight increased [Unknown]
  - Generalised oedema [Unknown]
  - Blister [Unknown]
  - Gait inability [Unknown]
  - Psoriasis [Unknown]
  - Pain [Unknown]
  - Wound [Recovering/Resolving]
  - Skin fissures [Unknown]
  - Muscle swelling [Unknown]
  - Breast enlargement [Unknown]
  - Breast disorder [Unknown]
